FAERS Safety Report 20318922 (Version 2)
Quarter: 2024Q1

REPORT INFORMATION
  Report Type: Other
  Country: GB (occurrence: None)
  Receive Date: 20220110
  Receipt Date: 20240205
  Transmission Date: 20240410
  Serious: Yes (Death, Other)
  Sender: FDA-Public Use
  Company Number: GB-ROCHE-2998317

PATIENT

DRUGS (6)
  1. RITUXIMAB [Suspect]
     Active Substance: RITUXIMAB
     Indication: Chronic lymphocytic leukaemia
     Dosage: ON DAY 1/2 OF CYCLE 1
     Route: 042
  2. RITUXIMAB [Suspect]
     Active Substance: RITUXIMAB
     Dosage: ON DAY 1 OF CYCLES 2-6 EVERY 28-DAYS
     Route: 042
  3. VENETOCLAX [Suspect]
     Active Substance: VENETOCLAX
     Indication: Chronic lymphocytic leukaemia
     Route: 065
  4. IBRUTINIB [Suspect]
     Active Substance: IBRUTINIB
     Indication: Chronic lymphocytic leukaemia
     Route: 065
  5. FLUDARABINE [Suspect]
     Active Substance: FLUDARABINE PHOSPHATE
     Indication: Chronic lymphocytic leukaemia
     Route: 065
  6. CYCLOPHOSPHAMIDE [Suspect]
     Active Substance: CYCLOPHOSPHAMIDE
     Indication: Chronic lymphocytic leukaemia
     Route: 065

REACTIONS (38)
  - COVID-19 [Fatal]
  - Cardiac death [Fatal]
  - Sudden death [Fatal]
  - Blood disorder [Unknown]
  - Lymphatic disorder [Unknown]
  - Acute kidney injury [Unknown]
  - Anaemia [Unknown]
  - Cough [Unknown]
  - Diarrhoea [Unknown]
  - Dyspnoea [Unknown]
  - Fatigue [Unknown]
  - Febrile neutropenia [Unknown]
  - Pyrexia [Unknown]
  - Headache [Unknown]
  - Upper respiratory tract infection [Unknown]
  - Haemolysis [Unknown]
  - Haemolytic anaemia [Unknown]
  - Hypertension [Unknown]
  - Infusion related reaction [Unknown]
  - Pneumonia [Unknown]
  - Lymphocyte count decreased [Unknown]
  - Nausea [Unknown]
  - Neutropenia [Unknown]
  - Acute myeloid leukaemia [Unknown]
  - Skin infection [Unknown]
  - Platelet count decreased [Unknown]
  - Richter^s syndrome [Unknown]
  - Tumour lysis syndrome [Unknown]
  - Rash [Unknown]
  - Myelodysplastic syndrome [Unknown]
  - Sepsis [Unknown]
  - Vomiting [Unknown]
  - Arrhythmia [Unknown]
  - Constipation [Unknown]
  - Taste disorder [Unknown]
  - Decreased appetite [Unknown]
  - Atrial fibrillation [Unknown]
  - Haemorrhage [Unknown]
